FAERS Safety Report 12370520 (Version 1)
Quarter: 2016Q2

REPORT INFORMATION
  Report Type: Spontaneous
  Country: US (occurrence: None)
  Receive Date: 20160513
  Receipt Date: 20160513
  Transmission Date: 20160815
  Serious: No
  Sender: FDA-Public Use
  Company Number: None

PATIENT
  Age: 66 Year
  Sex: Female

DRUGS (22)
  1. CIPROFLOXACIN. [Concomitant]
     Active Substance: CIPROFLOXACIN
  2. ZOLPIDEM [Concomitant]
     Active Substance: ZOLPIDEM\ZOLPIDEM TARTRATE
  3. HYDROCO/APAP [Concomitant]
     Active Substance: ACETAMINOPHEN\HYDROCODONE
  4. FOLIC ACID. [Concomitant]
     Active Substance: FOLIC ACID
  5. TIMOLOL. [Concomitant]
     Active Substance: TIMOLOL
  6. OXYBUTYNIN [Concomitant]
     Active Substance: OXYBUTYNIN
  7. LISINOPRIL. [Concomitant]
     Active Substance: LISINOPRIL
  8. KLOR-CON [Concomitant]
     Active Substance: POTASSIUM CHLORIDE
  9. METHYLPRED [Concomitant]
     Active Substance: METHYLPREDNISOLONE
  10. XELJANZ [Suspect]
     Active Substance: TOFACITINIB CITRATE
     Indication: RHEUMATOID ARTHRITIS
     Route: 048
     Dates: start: 20130820
  11. CLOBETASOL [Concomitant]
     Active Substance: CLOBETASOL
  12. PREDNISONE. [Concomitant]
     Active Substance: PREDNISONE
  13. METOPROLOL. [Concomitant]
     Active Substance: METOPROLOL
  14. HYDROXYZ HCL [Concomitant]
     Active Substance: HYDROXYZINE HYDROCHLORIDE
  15. TACLONEX [Concomitant]
     Active Substance: BETAMETHASONE DIPROPIONATE\CALCIPOTRIENE\CALCIPOTRIENE HYDRATE
  16. UREA. [Concomitant]
     Active Substance: UREA
  17. ATORVASTATIN [Concomitant]
     Active Substance: ATORVASTATIN
  18. METFORMIN [Concomitant]
     Active Substance: METFORMIN HYDROCHLORIDE
  19. FUROSEMIDE. [Concomitant]
     Active Substance: FUROSEMIDE
  20. IBUPROFEN. [Concomitant]
     Active Substance: IBUPROFEN
  21. METHOTREXATE [Concomitant]
     Active Substance: METHOTREXATE
  22. OMEPRAZOLE. [Concomitant]
     Active Substance: OMEPRAZOLE

REACTIONS (1)
  - Headache [None]

NARRATIVE: CASE EVENT DATE: 20160407
